FAERS Safety Report 4534521-8 (Version None)
Quarter: 2004Q4

REPORT INFORMATION
  Report Type: 
  Country: None (occurrence: None)
  Receive Date: 20041214
  Receipt Date: 20041016
  Transmission Date: 20050328
  Serious: No
  Sender: FDA-Public Use
  Company Number: 2004240958US

PATIENT
  Age: 80 Year
  Sex: Female
  Weight: 59.9 kg

DRUGS (1)
  1. BEXTRA [Suspect]
     Indication: ARTHRITIS
     Dosage: 20 MG, QD, ORAL
     Route: 048
     Dates: start: 20041011, end: 20041012

REACTIONS (3)
  - ABASIA [None]
  - DRUG INEFFECTIVE [None]
  - HEADACHE [None]
